FAERS Safety Report 6083555-3 (Version None)
Quarter: 2009Q1

REPORT INFORMATION
  Report Type: 
  Country: None (occurrence: None)
  Receive Date: 20090219
  Receipt Date: 20090209
  Transmission Date: 20090719
  Serious: Yes (Hospitalization)
  Sender: FDA-Public Use
  Company Number: US-ABBOTT-09P-163-0502622-00

PATIENT
  Sex: Female

DRUGS (3)
  1. HUMIRA [Suspect]
     Indication: CROHN'S DISEASE
     Dosage: DAY 1
     Route: 058
     Dates: start: 20090113, end: 20090113
  2. HUMIRA [Suspect]
     Route: 058
     Dates: start: 20090128
  3. HUMIRA [Suspect]
     Dosage: RECEIVED 2ND INJECTION
     Route: 058
     Dates: start: 20090128

REACTIONS (3)
  - DEHYDRATION [None]
  - NAUSEA [None]
  - PYREXIA [None]
